FAERS Safety Report 5955009-3 (Version None)
Quarter: 2008Q4

REPORT INFORMATION
  Report Type: 
  Country: None (occurrence: None)
  Receive Date: 20081117
  Receipt Date: 20081031
  Transmission Date: 20090506
  Serious: Yes (Other)
  Sender: FDA-Public Use
  Company Number: KR-BAYER-200829923GPV

PATIENT
  Age: 36 Year
  Sex: Female

DRUGS (5)
  1. CAMPATH [Suspect]
     Indication: IMMUNOSUPPRESSION
     Route: 065
  2. FLUDARABINE PHOSPHATE [Suspect]
     Indication: IMMUNOSUPPRESSION
     Route: 065
  3. BUSULFAN [Suspect]
     Indication: IMMUNOSUPPRESSION
     Route: 065
  4. METHYLPREDNISOLONE 16MG TAB [Concomitant]
     Indication: IMMUNOSUPPRESSION
     Route: 065
  5. TACROLIMUS [Concomitant]
     Indication: IMMUNOSUPPRESSION
     Route: 065

REACTIONS (6)
  - ACUTE GRAFT VERSUS HOST DISEASE IN SKIN [None]
  - CHRONIC GRAFT VERSUS HOST DISEASE [None]
  - CYTOMEGALOVIRUS CHORIORETINITIS [None]
  - CYTOMEGALOVIRUS GASTROENTERITIS [None]
  - MYODESOPSIA [None]
  - VISUAL ACUITY REDUCED [None]
